FAERS Safety Report 5495447-9 (Version None)
Quarter: 2007Q4

REPORT INFORMATION
  Report Type: 
  Country: None (occurrence: None)
  Receive Date: 20071023
  Receipt Date: 20071008
  Transmission Date: 20080405
  Serious: Yes (Death)
  Sender: FDA-Public Use
  Company Number: 2007S1008995

PATIENT
  Age: 35 Year
  Sex: Male

DRUGS (10)
  1. FENTANYL TRANSDERMAL SYSTEM [Suspect]
     Indication: BACK PAIN
     Dosage: 75 UG/HR; EVERY 3 DAYS; TRANSDERMAL
     Route: 062
     Dates: start: 20060130, end: 20060204
  2. ROBAXIN [Suspect]
     Indication: BACK PAIN
     Dosage: ; EVERY 4 HOURS; ORAL
     Route: 048
  3. OXYCODONE (10 MG) [Suspect]
     Indication: BACK PAIN
     Dosage: 20 MG; EVERY 4 HOURS; ORAL
     Route: 048
  4. SKELAXIN [Suspect]
     Indication: BACK PAIN
     Dosage: 800 MG; 3 TIMES A DAY; ORAL
     Route: 048
  5. ALCOHOL /00002101/ [Suspect]
  6. PERCOCET [Concomitant]
  7. LEXAPRO [Concomitant]
  8. IBUPROFEN [Concomitant]
  9. MULTIVITAMIN [Concomitant]
  10. CALCIUM /00009901/ [Concomitant]

REACTIONS (11)
  - ABASIA [None]
  - ALCOHOL USE [None]
  - APHASIA [None]
  - CONFUSIONAL STATE [None]
  - CYANOSIS [None]
  - DRUG LEVEL INCREASED [None]
  - FALL [None]
  - FEELING COLD [None]
  - GAIT DISTURBANCE [None]
  - OVERDOSE [None]
  - RESPIRATORY ARREST [None]
